FAERS Safety Report 10611801 (Version 2)
Quarter: 2014Q4

REPORT INFORMATION
  Report Type: Spontaneous
  Country: US (occurrence: US)
  Receive Date: 20141126
  Receipt Date: 20141126
  Transmission Date: 20150529
  Serious: No
  Sender: FDA-Public Use
  Company Number: US-GLAXOSMITHKLINE-A1088491A

PATIENT

DRUGS (1)
  1. LOVAZA [Suspect]
     Active Substance: OMEGA-3-ACID ETHYL ESTERS
     Indication: LIPIDS
     Dosage: 1 GRAM UNKNOWN DOSING
     Route: 065
     Dates: start: 201408

REACTIONS (2)
  - Eructation [Unknown]
  - Product quality issue [Unknown]
